FAERS Safety Report 9345095 (Version 2)
Quarter: 2013Q3

REPORT INFORMATION
  Report Type: Spontaneous
  Country: US (occurrence: US)
  Receive Date: 20130612
  Receipt Date: 20130729
  Transmission Date: 20140515
  Serious: Yes (Death, Hospitalization, Other)
  Sender: FDA-Public Use
  Company Number: US-BAYER-2013-055925

PATIENT
  Age: 75 Year
  Sex: Female
  Weight: 50.2 kg

DRUGS (11)
  1. XARELTO [Suspect]
     Indication: HIP ARTHROPLASTY
     Dosage: 10 MG, UNK
     Route: 048
     Dates: start: 20130422, end: 20130422
  2. XARELTO [Suspect]
     Indication: THROMBOSIS PROPHYLAXIS
  3. CELEBREX [Suspect]
     Indication: PRODUCT USED FOR UNKNOWN INDICATION
     Dosage: 400 MG, QD
     Route: 048
     Dates: start: 20130422, end: 20130422
  4. CELEBREX [Suspect]
     Indication: PRODUCT USED FOR UNKNOWN INDICATION
     Dosage: 200 MG, BID
     Route: 048
     Dates: start: 20130422, end: 20130423
  5. ACETYLSALICYLIC ACID({=100 MG) [Suspect]
     Dosage: 81 MG, UNK
     Route: 048
  6. PRADAXA [Suspect]
     Indication: PRODUCT USED FOR UNKNOWN INDICATION
     Dosage: 75 MG, BID
     Route: 048
     Dates: end: 20130422
  7. LOVENOX [Suspect]
     Indication: PRODUCT USED FOR UNKNOWN INDICATION
     Dosage: 30 MG, UNK
     Route: 065
     Dates: start: 20130423, end: 20130423
  8. DILTIAZEM CD [Concomitant]
     Dosage: 180 MG, BID
     Route: 048
     Dates: start: 20130422
  9. AMIODARONE [Concomitant]
     Dosage: 200 MG, QD
     Route: 048
     Dates: start: 20130422, end: 20130424
  10. IOHEXOL [Concomitant]
     Dosage: 50 ML, UNK
     Route: 065
     Dates: start: 20130426
  11. LOSARTAN [Concomitant]
     Dosage: 100 MG, UNK
     Route: 065
     Dates: start: 20130422, end: 20130424

REACTIONS (8)
  - Death [Fatal]
  - Gastrointestinal haemorrhage [Unknown]
  - General physical health deterioration [Unknown]
  - Procedural haemorrhage [Unknown]
  - Rectal haemorrhage [Unknown]
  - Haematoma [Unknown]
  - Blood creatinine increased [Unknown]
  - Creatinine renal clearance decreased [None]
